FAERS Safety Report 9242033 (Version 1)
Quarter: 2013Q2

REPORT INFORMATION
  Report Type: Spontaneous
  Country: US (occurrence: US)
  Receive Date: 20130419
  Receipt Date: 20130419
  Transmission Date: 20140414
  Serious: Yes (Hospitalization, Other)
  Sender: FDA-Public Use
  Company Number: US-ROCHE-1214849

PATIENT
  Sex: Female

DRUGS (3)
  1. PEGASYS [Suspect]
     Indication: CHRONIC HEPATITIS C
     Route: 065
     Dates: start: 20130216, end: 20130405
  2. TELAPREVIR [Suspect]
     Indication: CHRONIC HEPATITIS C
     Route: 065
     Dates: start: 20130216, end: 20130405
  3. RIBASPHERE [Suspect]
     Indication: CHRONIC HEPATITIS C
     Route: 065
     Dates: start: 20130216, end: 20130405

REACTIONS (5)
  - Pneumonia [Unknown]
  - Pneumonia bacterial [Unknown]
  - Loss of consciousness [Unknown]
  - Lung neoplasm [Unknown]
  - Rash [Unknown]
